FAERS Safety Report 4777478-7 (Version None)
Quarter: 2005Q3

REPORT INFORMATION
  Report Type: 
  Country: None (occurrence: None)
  Receive Date: 20050915
  Receipt Date: 20050906
  Transmission Date: 20060218
  Serious: Yes (Hospitalization, Other)
  Sender: FDA-Public Use
  Company Number: 2005-08-1075

PATIENT
  Age: 57 Year
  Sex: Male
  Weight: 81.6475 kg

DRUGS (6)
  1. PEG-INTRON [Suspect]
     Indication: HEPATITIS C
     Dosage: 150 MCG QWK SUBCUTANEOUS
     Route: 058
     Dates: start: 20050420
  2. REBETOL [Suspect]
     Indication: HEPATITIS C
     Dosage: 1000 MG QD ORAL
     Route: 048
     Dates: start: 20050420
  3. VIAGRA [Suspect]
     Dosage: TWICE
     Dates: start: 20050728, end: 20050729
  4. GLUCOSAMINE/CHONDROITIN [Concomitant]
  5. AMBIEN [Concomitant]
  6. ALLEGRA [Concomitant]

REACTIONS (18)
  - CEREBRAL INFARCTION [None]
  - CONVULSION [None]
  - DEHYDRATION [None]
  - DIZZINESS [None]
  - DYSGEUSIA [None]
  - DYSPNOEA EXERTIONAL [None]
  - ECZEMA [None]
  - ENCEPHALOMALACIA [None]
  - HAEMATOCRIT DECREASED [None]
  - HYPERHIDROSIS [None]
  - MITRAL VALVE INCOMPETENCE [None]
  - NAUSEA [None]
  - NEUTROPHIL COUNT DECREASED [None]
  - PHARYNGOLARYNGEAL PAIN [None]
  - PRURITUS [None]
  - SOMNOLENCE [None]
  - SYNCOPE VASOVAGAL [None]
  - WHITE BLOOD CELL COUNT DECREASED [None]
